FAERS Safety Report 5135378-7 (Version None)
Quarter: 2006Q4

REPORT INFORMATION
  Report Type: 
  Country: None (occurrence: None)
  Receive Date: 20061026
  Receipt Date: 20060926
  Transmission Date: 20070319
  Serious: Yes (Death)
  Sender: FDA-Public Use
  Company Number: US-BRISTOL-MYERS SQUIBB COMPANY-13522511

PATIENT
  Age: 81 Year
  Sex: Female

DRUGS (30)
  1. COUMADIN [Suspect]
     Indication: DEEP VEIN THROMBOSIS
     Dosage: COUMADIN 1MG,TAKEN 3 DAILY. COUMADIN 4 MG, TAKEN 2 DAILY. 5 MG MOST RECENT DOSE.
     Route: 048
  2. COUMADIN [Suspect]
     Indication: ATRIAL FIBRILLATION
     Dosage: COUMADIN 1MG,TAKEN 3 DAILY. COUMADIN 4 MG, TAKEN 2 DAILY. 5 MG MOST RECENT DOSE.
     Route: 048
  3. MULTI-VITAMIN [Concomitant]
     Indication: NUTRITIONAL SUPPORT
     Route: 048
  4. OMEPRAZOLE [Concomitant]
     Indication: ABDOMINAL DISCOMFORT
     Route: 048
  5. RENAGEL [Concomitant]
     Indication: RENAL FAILURE CHRONIC
     Route: 048
  6. SUCRALFATE [Concomitant]
     Indication: RENAL FAILURE CHRONIC
     Route: 048
  7. DSS [Concomitant]
     Indication: CONSTIPATION
     Route: 048
  8. PREDNISONE TAB [Concomitant]
     Route: 048
  9. CIPROFLOXACIN HCL [Concomitant]
     Indication: WOUND INFECTION
     Route: 048
  10. AMIODARONE HCL [Concomitant]
     Indication: ATRIAL FIBRILLATION
     Route: 048
  11. ASPIRIN [Concomitant]
     Indication: DEEP VEIN THROMBOSIS
     Route: 048
  12. LIPITOR [Concomitant]
     Indication: HYPERLIPIDAEMIA
     Route: 048
  13. CALCIUM ACETATE [Concomitant]
     Indication: RENAL FAILURE CHRONIC
     Route: 048
  14. ARANESP [Concomitant]
     Indication: RENAL FAILURE CHRONIC
     Route: 058
  15. HUMULIN N [Concomitant]
     Indication: DIABETES MELLITUS
     Route: 058
  16. HUMULIN N [Concomitant]
     Route: 058
  17. LEVOTHYROXINE SODIUM [Concomitant]
     Indication: HYPOTHYROIDISM
     Route: 048
  18. METOPROLOL TARTRATE [Concomitant]
     Indication: HYPERTENSION
     Route: 048
  19. DOXYCYCLINE [Concomitant]
     Indication: WOUND INFECTION
     Route: 048
  20. BACTROBAN [Concomitant]
     Indication: ERYTHEMA
  21. LOTRISONE [Concomitant]
     Indication: ERYTHEMA
  22. FLAGYL [Concomitant]
     Route: 048
  23. XANAX [Concomitant]
     Route: 048
  24. APAP #3 [Concomitant]
     Indication: PAIN
  25. FENTANYL [Concomitant]
     Indication: PAIN
     Route: 030
  26. PERCOCET [Concomitant]
     Route: 048
  27. MIDODRINE HCL [Concomitant]
     Indication: HYPERTENSION
     Route: 048
  28. AMBIEN CR [Concomitant]
     Route: 048
  29. APAP TAB [Concomitant]
  30. JUICE PLUS [Concomitant]
     Indication: NUTRITIONAL SUPPORT

REACTIONS (1)
  - DEATH [None]
